FAERS Safety Report 6570497-X (Version None)
Quarter: 2010Q1

REPORT INFORMATION
  Report Type: 
  Country: None (occurrence: None)
  Receive Date: 20100204
  Receipt Date: 20091023
  Transmission Date: 20100710
  Serious: No
  Sender: FDA-Public Use
  Company Number: A0811908A

PATIENT
  Weight: 100 kg

DRUGS (1)
  1. ARIXTRA [Suspect]
     Indication: PULMONARY EMBOLISM
     Dosage: 12.5MG UNKNOWN
     Route: 058

REACTIONS (2)
  - DRUG INEFFECTIVE [None]
  - OVERDOSE [None]
